FAERS Safety Report 7780256-8 (Version None)
Quarter: 2011Q3

REPORT INFORMATION
  Report Type: 
  Country: None (occurrence: None)
  Receive Date: 20110927
  Receipt Date: 20110920
  Transmission Date: 20111222
  Serious: Yes (Hospitalization)
  Sender: FDA-Public Use
  Company Number: US-ACTELION-A-NJ2011-52675

PATIENT

DRUGS (5)
  1. VENTAVIS [Suspect]
     Indication: PULMONARY ARTERIAL HYPERTENSION
     Dosage: UNK
     Route: 055
     Dates: start: 20101007, end: 20110601
  2. REVATIO [Concomitant]
  3. INSULIN [Concomitant]
  4. PLAVIX [Concomitant]
  5. TRACLEER [Suspect]
     Indication: PULMONARY ARTERIAL HYPERTENSION
     Dosage: UNK
     Route: 048
     Dates: start: 20100223

REACTIONS (3)
  - PULMONARY ARTERIAL HYPERTENSION [None]
  - HERPES ZOSTER [None]
  - CONDITION AGGRAVATED [None]
